FAERS Safety Report 16877122 (Version 2)
Quarter: 2019Q4

REPORT INFORMATION
  Report Type: Spontaneous
  Country: GB (occurrence: DK)
  Receive Date: 20191002
  Receipt Date: 20191002
  Transmission Date: 20200122
  Serious: Yes (Other)
  Sender: FDA-Public Use
  Company Number: DK-BAYER-2019-176484

PATIENT
  Age: 39 Year
  Sex: Female

DRUGS (5)
  1. AVELOX [Suspect]
     Active Substance: MOXIFLOXACIN HYDROCHLORIDE
     Indication: TUBERCULOSIS OF GENITOURINARY SYSTEM
     Dosage: 400 MG, QD
     Route: 048
     Dates: start: 20190830, end: 20190906
  2. RIMACTAN [RIFAMPICIN SODIUM] [Concomitant]
     Active Substance: RIFAMPIN SODIUM
     Indication: TUBERCULOSIS OF GENITOURINARY SYSTEM
     Dosage: 450 MG, QD
     Dates: start: 20190802
  3. FUROSEMID HEXAL [Concomitant]
     Active Substance: FUROSEMIDE
     Indication: DIURETIC THERAPY
     Dosage: 375 MG, QD
     Route: 048
     Dates: start: 20190831
  4. PANTOPRAZOLE TEVA [Concomitant]
     Active Substance: PANTOPRAZOLE SODIUM
     Indication: GASTRIC ULCER
     Dosage: 40 MG, QD
     Route: 048
     Dates: start: 20180122
  5. METOPROLOLSUCCINAAT [Concomitant]
     Active Substance: METOPROLOL SUCCINATE
     Indication: HYPERTENSION
     Dosage: 200 MG, QD
     Route: 048
     Dates: start: 20180212

REACTIONS (4)
  - Restlessness [Unknown]
  - Arrhythmia [Unknown]
  - Neuralgia [Unknown]
  - Akathisia [Unknown]

NARRATIVE: CASE EVENT DATE: 20190830
